FAERS Safety Report 4893122-2 (Version None)
Quarter: 2005Q4

REPORT INFORMATION
  Report Type: 
  Country: None (occurrence: None)
  Receive Date: 20051223
  Receipt Date: 20050207
  Transmission Date: 20060501
  Serious: Yes (Other)
  Sender: FDA-Public Use
  Company Number: PHEH2005US00469

PATIENT
  Age: 18 Year
  Sex: Female

DRUGS (5)
  1. CLOZARIL [Suspect]
     Indication: SCHIZOAFFECTIVE DISORDER
     Dosage: 175 MG, QD, ORAL; 150 MG, QD, ORAL
     Route: 048
     Dates: start: 20050103, end: 20050101
  2. CLOZARIL [Suspect]
     Indication: SCHIZOAFFECTIVE DISORDER
     Dosage: 175 MG, QD, ORAL; 150 MG, QD, ORAL
     Route: 048
     Dates: start: 20041014, end: 20050102
  3. XANAX [Concomitant]
  4. LITHIUM CARBONATE [Concomitant]
  5. COGENTIN [Concomitant]

REACTIONS (11)
  - BALANCE DISORDER [None]
  - CONFUSIONAL STATE [None]
  - DISTURBANCE IN ATTENTION [None]
  - DROOLING [None]
  - DYSARTHRIA [None]
  - DYSPHAGIA [None]
  - EXTRAPYRAMIDAL DISORDER [None]
  - FATIGUE [None]
  - GAIT DISTURBANCE [None]
  - LETHARGY [None]
  - PSYCHOTIC DISORDER [None]
